FAERS Safety Report 25102773 (Version 3)
Quarter: 2025Q3

REPORT INFORMATION
  Report Type: Report from Study
  Country: EU (occurrence: EU)
  Receive Date: 20250321
  Receipt Date: 20250714
  Transmission Date: 20251020
  Serious: Yes (Other)
  Sender: TAKEDA
  Company Number: EU-TAKEDA-2025TUS027322

PATIENT
  Age: 31 Year
  Sex: Female

DRUGS (7)
  1. HUMAN IMMUNOGLOBULIN G\HYALURONIDASE RECOMBINANT HUMAN [Suspect]
     Active Substance: HUMAN IMMUNOGLOBULIN G\HYALURONIDASE (HUMAN RECOMBINANT)
     Indication: Neuromyelitis optica spectrum disorder
  2. HUMAN IMMUNOGLOBULIN G\HYALURONIDASE RECOMBINANT HUMAN [Suspect]
     Active Substance: HUMAN IMMUNOGLOBULIN G\HYALURONIDASE (HUMAN RECOMBINANT)
  3. HUMAN IMMUNOGLOBULIN G\HYALURONIDASE RECOMBINANT HUMAN [Suspect]
     Active Substance: HUMAN IMMUNOGLOBULIN G\HYALURONIDASE (HUMAN RECOMBINANT)
  4. HUMAN IMMUNOGLOBULIN G\HYALURONIDASE RECOMBINANT HUMAN [Suspect]
     Active Substance: HUMAN IMMUNOGLOBULIN G\HYALURONIDASE (HUMAN RECOMBINANT)
  5. LONARID [Concomitant]
     Active Substance: ACETAMINOPHEN\AMOBARBITAL\CAFFEINE\CODEINE PHOSPHATE
     Indication: Pain
  6. ARCOXIA [Concomitant]
     Active Substance: ETORICOXIB
     Indication: Pain
  7. CORTISONE [Concomitant]
     Active Substance: CORTISONE
     Dosage: 7.5 MILLILITER, QD

REACTIONS (8)
  - Abortion missed [Unknown]
  - Autoimmune disorder [Unknown]
  - Rheumatoid arthritis [Unknown]
  - Multiple sclerosis [Unknown]
  - Menstrual disorder [Unknown]
  - Pregnancy [Recovered/Resolved]
  - Tendonitis [Unknown]
  - Fluid retention [Unknown]

NARRATIVE: CASE EVENT DATE: 20250210
